FAERS Safety Report 24733611 (Version 1)
Quarter: 2024Q4

REPORT INFORMATION
  Report Type: Spontaneous
  Country: US (occurrence: US)
  Receive Date: 20241213
  Receipt Date: 20241213
  Transmission Date: 20250115
  Serious: No
  Sender: NOVO NORDISK
  Company Number: US-NOVOPROD-1224683

PATIENT
  Sex: Male

DRUGS (1)
  1. LEVEMIR [Suspect]
     Active Substance: INSULIN DETEMIR
     Indication: Product used for unknown indication
     Dosage: 25 UNITS
     Route: 058

REACTIONS (6)
  - Cough [Recovered/Resolved]
  - Wheezing [Recovered/Resolved]
  - Off label use [Not Recovered/Not Resolved]
  - Product communication issue [Not Recovered/Not Resolved]
  - Wrong technique in device usage process [Not Recovered/Not Resolved]
  - Product storage error [Not Recovered/Not Resolved]
